FAERS Safety Report 5158269-4 (Version None)
Quarter: 2006Q4

REPORT INFORMATION
  Report Type: 
  Country: None (occurrence: None)
  Receive Date: 20061117
  Receipt Date: 20061106
  Transmission Date: 20070319
  Serious: Yes (Disabling)
  Sender: FDA-Public Use
  Company Number: FRWYE423006NOV06

PATIENT
  Sex: Male

DRUGS (8)
  1. EFFEXOR [Suspect]
     Indication: CONVERSION DISORDER
     Dosage: 125 MG TOTAL DAILY TRANSPLACENTAL
     Route: 064
     Dates: start: 20050925, end: 20051109
  2. EFFEXOR [Suspect]
     Indication: PARAPLEGIA
     Dosage: 125 MG TOTAL DAILY TRANSPLACENTAL
     Route: 064
     Dates: start: 20050925, end: 20051109
  3. ATARAX [Suspect]
     Dosage: 25 MG; TRANSPLACENTAL
     Route: 064
     Dates: end: 20060530
  4. MYOLASTAN (TETRAZEPAM, , 0) [Suspect]
     Dosage: 50 MG 1X PER 1 DAY TRANSPLACENTAL
     Route: 064
     Dates: start: 20050925, end: 20051109
  5. ZOLPIDEM TARTRATE [Suspect]
     Dosage: 10 MG 1X PER 1 DAY TRANSPLACENTAL
     Route: 064
     Dates: start: 20050925, end: 20051109
  6. TRAMADOL HCL [Suspect]
     Dosage: 200 MG 2X PER 1 DAY TRANSPLACENTAL
     Route: 064
     Dates: start: 20050925, end: 20051109
  7. TRANXENE [Suspect]
     Dosage: 10 MG 2X PER 1 DAY TRANSPLACENTAL
     Route: 064
     Dates: start: 20050925, end: 20051109
  8. VALIUM [Suspect]
     Dosage: TRANSPLACENTAL
     Route: 064
     Dates: end: 20060530

REACTIONS (2)
  - DRUG EXPOSURE DURING PREGNANCY [None]
  - TALIPES [None]
